FAERS Safety Report 20708179 (Version 3)
Quarter: 2022Q3

REPORT INFORMATION
  Report Type: Spontaneous
  Country: US (occurrence: US)
  Receive Date: 20220414
  Receipt Date: 20220922
  Transmission Date: 20221026
  Serious: Yes (Hospitalization, Other)
  Sender: FDA-Public Use
  Company Number: US-AUROBINDO-AUR-APL-2022-012472

PATIENT
  Age: 36 Year
  Sex: Female

DRUGS (5)
  1. METHYLPREDNISOLONE [Suspect]
     Active Substance: METHYLPREDNISOLONE
     Indication: Relapsing-remitting multiple sclerosis
     Dosage: UNK
     Route: 042
  2. METHYLPREDNISOLONE [Suspect]
     Active Substance: METHYLPREDNISOLONE
     Indication: Cauda equina syndrome
  3. GLATIRAMER ACETATE [Suspect]
     Active Substance: GLATIRAMER ACETATE
     Indication: Relapsing-remitting multiple sclerosis
     Dosage: UNK
     Route: 065
  4. PREDNISONE [Suspect]
     Active Substance: PREDNISONE
     Indication: Relapsing-remitting multiple sclerosis
     Dosage: UNK,TAPER (AFTER THE SECOND RELAPSE)
     Route: 048
  5. PREDNISONE [Suspect]
     Active Substance: PREDNISONE
     Dosage: UNK1ST RELAPSE
     Route: 048

REACTIONS (3)
  - Herpes simplex [Recovering/Resolving]
  - Elsberg syndrome [Recovering/Resolving]
  - Cauda equina syndrome [Recovering/Resolving]
